FAERS Safety Report 9809182 (Version 3)
Quarter: 2014Q1

REPORT INFORMATION
  Report Type: Spontaneous
  Country: US (occurrence: US)
  Receive Date: 20140110
  Receipt Date: 20140129
  Transmission Date: 20141002
  Serious: No
  Sender: FDA-Public Use
  Company Number: US-TEVA-455114USA

PATIENT
  Age: 41 Year
  Sex: Male
  Weight: 99.88 kg

DRUGS (3)
  1. NUVIGIL [Suspect]
     Indication: INSOMNIA
     Route: 048
  2. NUVIGIL [Suspect]
     Indication: SLEEP APNOEA SYNDROME
  3. FLONASE [Concomitant]
     Indication: HYPERSENSITIVITY

REACTIONS (4)
  - Insomnia [Not Recovered/Not Resolved]
  - Somnolence [Recovered/Resolved]
  - Drug ineffective [Recovered/Resolved]
  - Somnolence [Not Recovered/Not Resolved]
